FAERS Safety Report 5634612-4 (Version None)
Quarter: 2008Q1

REPORT INFORMATION
  Report Type: 
  Country: None (occurrence: None)
  Receive Date: 20080222
  Receipt Date: 20080212
  Transmission Date: 20080703
  Serious: Yes (Death, Other)
  Sender: FDA-Public Use
  Company Number: GB-AMGEN-US237711

PATIENT
  Sex: Male
  Weight: 65.3 kg

DRUGS (12)
  1. ENBREL [Suspect]
     Indication: RHEUMATOID ARTHRITIS
     Route: 058
     Dates: start: 20040705, end: 20070726
  2. METHOTREXATE [Suspect]
     Indication: RHEUMATOID ARTHRITIS
     Route: 048
     Dates: start: 19961001, end: 20070701
  3. VENTOLIN [Concomitant]
     Indication: EMPHYSEMA
     Dosage: DOSAGE UNKNOWN, PRN
     Route: 065
  4. VENTOLIN [Concomitant]
     Indication: ASTHMA
  5. BECOTIDE [Concomitant]
     Indication: EMPHYSEMA
     Dosage: DOSAGE UNKNOWN, TWICE DAILY
     Route: 065
  6. BECOTIDE [Concomitant]
     Indication: ASTHMA
  7. ASCORBIC ACID [Concomitant]
     Dosage: UNKNOWN
     Route: 065
  8. FOLIC ACID [Concomitant]
     Route: 065
     Dates: start: 20020501
  9. PREDNISOLONE [Concomitant]
     Dosage: UNKNOWN
     Route: 065
  10. CO-DYDRAMOL [Concomitant]
     Dosage: UNKNOWN
     Route: 065
  11. TRAMADOL HCL [Concomitant]
     Dosage: UNKNOWN
     Route: 065
  12. CALCICHEW-D3 [Concomitant]
     Route: 065

REACTIONS (1)
  - LUNG CANCER METASTATIC [None]
